FAERS Safety Report 17667563 (Version 3)
Quarter: 2020Q2

REPORT INFORMATION
  Report Type: Spontaneous
  Country: RU (occurrence: RU)
  Receive Date: 20200414
  Receipt Date: 20200428
  Transmission Date: 20200713
  Serious: Yes (Other)
  Sender: FDA-Public Use
  Company Number: RU-PFIZER INC-2020150389

PATIENT
  Age: 23 Year

DRUGS (1)
  1. METHYLPREDNISOLONE. [Suspect]
     Active Substance: METHYLPREDNISOLONE
     Indication: GRANULOMATOSIS WITH POLYANGIITIS
     Dosage: UNK

REACTIONS (7)
  - Cushing^s syndrome [Unknown]
  - Oesophageal candidiasis [Unknown]
  - Osteonecrosis [Unknown]
  - Off label use [Unknown]
  - Dacryostenosis congenital [Unknown]
  - Product use in unapproved indication [Unknown]
  - Glossitis [Unknown]
